FAERS Safety Report 9940598 (Version 1)
Quarter: 2014Q1

REPORT INFORMATION
  Report Type: Spontaneous
  Country: US (occurrence: US)
  Receive Date: 20140303
  Receipt Date: 20140303
  Transmission Date: 20141002
  Serious: No
  Sender: FDA-Public Use
  Company Number: US-PFIZER INC-2014060204

PATIENT
  Age: 68 Year
  Sex: Female
  Weight: 67.12 kg

DRUGS (10)
  1. NEURONTIN [Suspect]
     Dosage: UNK, 2X/DAY
  2. DIOVAN (VALSARTAN) [Concomitant]
     Dosage: 80 MG, DAILY
  3. PLAVIX [Concomitant]
     Dosage: UNK
  4. LIPITOR [Concomitant]
     Indication: BLOOD CHOLESTEROL ABNORMAL
     Dosage: UNK
  5. POTASSIUM [Concomitant]
     Dosage: UNK
  6. CARVEDILOL [Concomitant]
     Dosage: 3.1 MG, 2X/DAY
  7. DORZOLAMIDE HYDROCHLORIDE/TIMOLOL MALEATE [Concomitant]
     Indication: GLAUCOMA
     Dosage: UNK
  8. ATIVAN [Concomitant]
     Dosage: UNK
  9. DEXILANT [Concomitant]
     Dosage: UNK
  10. BRIMONIDINE [Concomitant]
     Dosage: UNK

REACTIONS (1)
  - Drug ineffective [Unknown]
